FAERS Safety Report 18522746 (Version 2)
Quarter: 2020Q4

REPORT INFORMATION
  Report Type: Spontaneous
  Country: PK (occurrence: PK)
  Receive Date: 20201119
  Receipt Date: 20201210
  Transmission Date: 20210114
  Serious: Yes (Other)
  Sender: FDA-Public Use
  Company Number: PK-NOVOPROD-767224

PATIENT
  Age: 33 Year
  Sex: Female
  Weight: 84 kg

DRUGS (2)
  1. NOVOMIX 50 FLEXPEN [Suspect]
     Active Substance: INSULIN ASPART
     Dosage: 60 IU, QD(30+30)
     Route: 058
     Dates: end: 20200830
  2. NOVOMIX 50 FLEXPEN [Suspect]
     Active Substance: INSULIN ASPART
     Indication: TYPE 2 DIABETES MELLITUS
     Dosage: 20 IU, QD(10+10)
     Route: 058
     Dates: start: 20200727

REACTIONS (4)
  - Abortion spontaneous [Unknown]
  - Foetal growth abnormality [Unknown]
  - Diabetes mellitus inadequate control [Not Recovered/Not Resolved]
  - Maternal exposure during pregnancy [Recovered/Resolved]

NARRATIVE: CASE EVENT DATE: 2020
